FAERS Safety Report 4610093-4 (Version None)
Quarter: 2005Q1

REPORT INFORMATION
  Report Type: 
  Country: None (occurrence: None)
  Receive Date: 20050316
  Receipt Date: 20050203
  Transmission Date: 20050727
  Serious: Yes (Death, Hospitalization)
  Sender: FDA-Public Use
  Company Number: RO-SANOFI-SYNTHELABO-A01200500581

PATIENT
  Sex: Male
  Weight: 95 kg

DRUGS (7)
  1. PLAVIX [Suspect]
     Indication: ANGINA UNSTABLE
     Route: 048
     Dates: start: 20050112, end: 20050131
  2. TRIMETAZIDINE [Concomitant]
     Indication: ANGINA UNSTABLE
     Route: 048
  3. NITROGLYCERIN [Concomitant]
     Indication: ANGINA UNSTABLE
     Route: 048
  4. METOPROLOL [Concomitant]
     Indication: ANGINA UNSTABLE
     Route: 048
  5. ACETYLSALICYLIC ACID SRT [Concomitant]
     Indication: ANGINA UNSTABLE
     Route: 048
  6. ATORVASTATIN CALCIUM [Concomitant]
     Indication: HYPERCHOLESTEROLAEMIA
     Route: 048
  7. GLICLAZIDE [Concomitant]
     Indication: DIABETES MELLITUS
     Route: 048

REACTIONS (3)
  - HAEMATURIA [None]
  - HAEMORRHAGIC STROKE [None]
  - THROMBOCYTOPENIA [None]
